FAERS Safety Report 24631488 (Version 1)
Quarter: 2024Q4

REPORT INFORMATION
  Report Type: Spontaneous
  Country: JP (occurrence: JP)
  Receive Date: 20241118
  Receipt Date: 20241118
  Transmission Date: 20250115
  Serious: Yes (Hospitalization, Other)
  Sender: ANI
  Company Number: JP-ANIPHARMA-2024-JP-000300

PATIENT
  Sex: Male

DRUGS (4)
  1. CASODEX [Suspect]
     Active Substance: BICALUTAMIDE
     Indication: Non-small cell lung cancer
     Dosage: 80 MILLIGRAM, QD
     Route: 048
     Dates: start: 20240625
  2. OSIMERTINIB [Suspect]
     Active Substance: OSIMERTINIB
     Dosage: 80 MILLIGRAM, QD
     Route: 048
     Dates: start: 20240725
  3. LOSARTAN [Concomitant]
     Active Substance: LOSARTAN
  4. ANTICOAGULANTE ACD [Concomitant]

REACTIONS (5)
  - Renal impairment [Unknown]
  - Parkinson^s disease [Unknown]
  - Diverticulum intestinal haemorrhagic [Unknown]
  - Rash [Unknown]
  - Drug ineffective [Unknown]

NARRATIVE: CASE EVENT DATE: 20240101
